FAERS Safety Report 8445090-4 (Version None)
Quarter: 2012Q2

REPORT INFORMATION
  Report Type: 
  Country: None (occurrence: None)
  Receive Date: 20120618
  Receipt Date: 20120612
  Transmission Date: 20120825
  Serious: Yes (Death, Life-Threatening, Hospitalization, Disabling)
  Sender: FDA-Public Use
  Company Number: GB-ROCHE-1077990

PATIENT
  Age: 51 Year
  Sex: Female

DRUGS (2)
  1. LAPATINIB [Suspect]
     Indication: BREAST CANCER METASTATIC
     Route: 048
  2. CAPECITABINE [Suspect]
     Indication: BREAST CANCER METASTATIC
     Dosage: 2 WEEKS ON AND ONE WEEK OFF
     Route: 048
     Dates: start: 20120402

REACTIONS (5)
  - THROMBOCYTOPENIA [None]
  - DIARRHOEA [None]
  - MUCOSAL INFLAMMATION [None]
  - DEATH [None]
  - NEUTROPENIA [None]
